FAERS Safety Report 22382838 (Version 1)
Quarter: 2023Q2

REPORT INFORMATION
  Report Type: Spontaneous
  Country: US (occurrence: None)
  Receive Date: 20230526
  Receipt Date: 20230526
  Transmission Date: 20230722
  Serious: Yes (Other)
  Sender: FDA-Public Use
  Company Number: None

PATIENT
  Age: 83 Year
  Sex: Female

DRUGS (3)
  1. EYLEA [Suspect]
     Active Substance: AFLIBERCEPT
     Indication: Neovascular age-related macular degeneration
     Dosage: EVERY 2 TO 2 MONTH OPHTHALMIC ?
     Route: 047
     Dates: start: 20220128, end: 20230509
  2. Eylea 2mg Prefilled Syringe [Concomitant]
     Dates: start: 20211210, end: 20211211
  3. Avastin (BEVACIZUMAB 2.5MG/0.1 ML Injection [Concomitant]
     Dates: start: 20211104, end: 20211105

REACTIONS (1)
  - Eye inflammation [None]

NARRATIVE: CASE EVENT DATE: 20230509
